FAERS Safety Report 10224414 (Version 1)
Quarter: 2014Q2

REPORT INFORMATION
  Report Type: Spontaneous
  Country: US (occurrence: US)
  Receive Date: 20140609
  Receipt Date: 20140609
  Transmission Date: 20141212
  Serious: No
  Sender: FDA-Public Use
  Company Number: US-PFIZER INC-2014157583

PATIENT
  Sex: Female
  Weight: 58.05 kg

DRUGS (2)
  1. NICOTROL INHALER [Suspect]
     Indication: SMOKING CESSATION THERAPY
     Dosage: UNK
  2. XANAX [Concomitant]
     Indication: ANXIETY
     Dosage: UNK

REACTIONS (1)
  - Stress [Not Recovered/Not Resolved]
